FAERS Safety Report 7455905-4 (Version None)
Quarter: 2011Q2

REPORT INFORMATION
  Report Type: 
  Country: None (occurrence: None)
  Receive Date: 20110503
  Receipt Date: 20110428
  Transmission Date: 20111010
  Serious: Yes (Other)
  Sender: FDA-Public Use
  Company Number: B0716275A

PATIENT
  Age: 43 Year
  Sex: Male

DRUGS (2)
  1. NEXEN [Suspect]
     Indication: MUSCLE SPASMS
     Route: 065
     Dates: start: 20110401
  2. DEROXAT [Suspect]
     Indication: PRODUCT USED FOR UNKNOWN INDICATION
     Dosage: 20MG PER DAY
     Route: 048
     Dates: start: 20110330

REACTIONS (6)
  - OEDEMA [None]
  - BLOOD CREATINE PHOSPHOKINASE INCREASED [None]
  - MUSCLE SPASMS [None]
  - BACK PAIN [None]
  - RHABDOMYOLYSIS [None]
  - WEIGHT INCREASED [None]
